FAERS Safety Report 6370662-0 (Version None)
Quarter: 2009Q3

REPORT INFORMATION
  Report Type: 
  Country: None (occurrence: None)
  Receive Date: 20090921
  Receipt Date: 20090921
  Transmission Date: 20100115
  Serious: Yes (Other)
  Sender: FDA-Public Use
  Company Number: None

PATIENT
  Age: 22 Year
  Sex: Female

DRUGS (2)
  1. THYROID TAB [Suspect]
     Indication: AUTOIMMUNE THYROIDITIS
     Dosage: 120 MG ONCE PER DAY PO
     Route: 048
     Dates: start: 20090101
  2. THYROID TAB [Suspect]
     Dosage: 30MG ONCE PER DAY PO
     Route: 048
     Dates: start: 20090101

REACTIONS (2)
  - HYPOTHYROIDISM [None]
  - PRODUCT FORMULATION ISSUE [None]
